FAERS Safety Report 22312925 (Version 1)
Quarter: 2023Q2

REPORT INFORMATION
  Report Type: Spontaneous
  Country: FR (occurrence: FR)
  Receive Date: 20230512
  Receipt Date: 20230512
  Transmission Date: 20230721
  Serious: Yes (Other)
  Sender: FDA-Public Use
  Company Number: FR-AFSSAPS-LL2023000381

PATIENT
  Age: 85 Year
  Sex: Female

DRUGS (4)
  1. AMLODIPINE [Suspect]
     Active Substance: AMLODIPINE BESYLATE
     Indication: Hypertension
     Dosage: 5 MILLIGRAM, DAILY
     Route: 048
     Dates: start: 20230227
  2. AMOXICILLIN [Suspect]
     Active Substance: AMOXICILLIN
     Indication: Streptococcal bacteraemia
     Dosage: 150 MG/KG/DAY
     Route: 040
     Dates: start: 20230222, end: 20230225
  3. AMOXICILLIN [Suspect]
     Active Substance: AMOXICILLIN
     Dosage: 2 GRAM, TID
     Route: 040
     Dates: start: 20230225
  4. MIRTAZAPINE [Suspect]
     Active Substance: MIRTAZAPINE
     Indication: Depression
     Dosage: 15 MILLIGRAM, DAILY
     Route: 048
     Dates: start: 20230228

REACTIONS (2)
  - Hepatocellular injury [Not Recovered/Not Resolved]
  - Cholestasis [Not Recovered/Not Resolved]

NARRATIVE: CASE EVENT DATE: 20230301
